FAERS Safety Report 15696195 (Version 1)
Quarter: 2018Q4

REPORT INFORMATION
  Report Type: Report from Study
  Country: US (occurrence: US)
  Receive Date: 20181206
  Receipt Date: 20181206
  Transmission Date: 20190205
  Serious: No
  Sender: FDA-Public Use
  Company Number: PHEH2018US050677

PATIENT
  Age: 48 Year
  Sex: Female

DRUGS (2)
  1. COSENTYX [Suspect]
     Active Substance: SECUKINUMAB
     Indication: PSORIATIC ARTHROPATHY
     Dosage: 300 MG, QMO
     Route: 058
     Dates: start: 20180627
  2. COSENTYX [Suspect]
     Active Substance: SECUKINUMAB
     Indication: PSORIASIS

REACTIONS (4)
  - Tongue injury [Not Recovered/Not Resolved]
  - Drug effect incomplete [Not Recovered/Not Resolved]
  - Lip dry [Not Recovered/Not Resolved]
  - Chapped lips [Not Recovered/Not Resolved]

NARRATIVE: CASE EVENT DATE: 20180828
